FAERS Safety Report 24908135 (Version 1)
Quarter: 2025Q1

REPORT INFORMATION
  Report Type: Spontaneous
  Country: DE (occurrence: DE)
  Receive Date: 20250131
  Receipt Date: 20250131
  Transmission Date: 20250408
  Serious: Yes (Other)
  Sender: ALKEM
  Company Number: DE-ALKEM LABORATORIES LIMITED-DE-ALKEM-2025-00813

PATIENT
  Age: 55 Year

DRUGS (1)
  1. FINGOLIMOD [Suspect]
     Active Substance: FINGOLIMOD
     Indication: Multiple sclerosis
     Route: 065

REACTIONS (2)
  - Acute myocardial infarction [Unknown]
  - Lymphopenia [Unknown]

NARRATIVE: CASE EVENT DATE: 20240101
